FAERS Safety Report 5672538-0 (Version None)
Quarter: 2008Q1

REPORT INFORMATION
  Report Type: 
  Country: None (occurrence: None)
  Receive Date: 20080318
  Receipt Date: 20080318
  Transmission Date: 20080703
  Serious: No
  Sender: FDA-Public Use
  Company Number: None

PATIENT
  Age: 55 Year
  Sex: Female
  Weight: 78.0187 kg

DRUGS (1)
  1. BONIVA [Suspect]
     Indication: OSTEOPOROSIS
     Dosage: BONIVA150MG MONTHLY PO (DURATION: ONLY TOOK ONCE)
     Route: 048
     Dates: start: 20080101, end: 20080201

REACTIONS (6)
  - GAIT DISTURBANCE [None]
  - MONOPLEGIA [None]
  - MOVEMENT DISORDER [None]
  - NO THERAPEUTIC RESPONSE [None]
  - PAIN IN EXTREMITY [None]
  - SENSATION OF HEAVINESS [None]
